FAERS Safety Report 6611896-7 (Version None)
Quarter: 2010Q1

REPORT INFORMATION
  Report Type: 
  Country: None (occurrence: None)
  Receive Date: 20100226
  Receipt Date: 20100226
  Transmission Date: 20100710
  Serious: No
  Sender: FDA-Public Use
  Company Number: None

PATIENT
  Age: 58 Year
  Sex: Female
  Weight: 54.4316 kg

DRUGS (2)
  1. CEFDINIR [Suspect]
     Indication: SINUSITIS
     Dosage: ONE TWICE DAILY
     Dates: start: 20100113, end: 20100117
  2. CEFDINIR [Suspect]
     Indication: SINUSITIS
     Dosage: ONE TWICE DAILY
     Dates: start: 20100221, end: 20100222

REACTIONS (1)
  - DIARRHOEA [None]
